FAERS Safety Report 17615120 (Version 12)
Quarter: 2021Q3

REPORT INFORMATION
  Report Type: Spontaneous
  Country: US (occurrence: US)
  Receive Date: 20200402
  Receipt Date: 20210806
  Transmission Date: 20211014
  Serious: No
  Sender: FDA-Public Use
  Company Number: US-PFIZER INC-2019466163

PATIENT
  Age: 45 Year
  Sex: Female

DRUGS (9)
  1. GENOTROPIN [Suspect]
     Active Substance: SOMATROPIN
     Indication: BRAIN NEOPLASM
     Dosage: 1.3 MG, DAILY
  2. GENOTROPIN [Suspect]
     Active Substance: SOMATROPIN
     Dosage: 1.3 MG, UNK
  3. GENOTROPIN [Suspect]
     Active Substance: SOMATROPIN
     Dosage: 1.3 MG, DAILY (1.3 MG, 7 DAYS A WEEK)
     Dates: start: 20191108, end: 202003
  4. GENOTROPIN [Suspect]
     Active Substance: SOMATROPIN
     Dosage: 0.8 MG
  5. GENOTROPIN [Suspect]
     Active Substance: SOMATROPIN
     Dosage: 1.2 MG, DAILY [,7DAYS/WK]
     Dates: start: 20191108
  6. GENOTROPIN [Suspect]
     Active Substance: SOMATROPIN
     Indication: HYPOTHALAMO-PITUITARY DISORDER
     Dosage: ALTERNATING 1.2 AND 1.4 MG
     Dates: start: 2013
  7. GENOTROPIN [Suspect]
     Active Substance: SOMATROPIN
     Dosage: ALTERNATING 1.2 AND 1.4 MG
     Dates: start: 2013
  8. GENOTROPIN [Suspect]
     Active Substance: SOMATROPIN
     Dosage: 1.6 MG, DAILY
     Dates: start: 20191108
  9. GENOTROPIN [Suspect]
     Active Substance: SOMATROPIN
     Dosage: 0.8 MG, DAILY (7 DAYS A WEEK)
     Dates: start: 20191108

REACTIONS (10)
  - Somnolence [Unknown]
  - Hypersomnia [Unknown]
  - Device leakage [Unknown]
  - Wrong technique in device usage process [Unknown]
  - Product prescribing error [Unknown]
  - Fatigue [Unknown]
  - Drug dose omission by device [Unknown]
  - Condition aggravated [Unknown]
  - Memory impairment [Unknown]
  - Feeling abnormal [Unknown]
